FAERS Safety Report 5392917-9 (Version None)
Quarter: 2007Q3

REPORT INFORMATION
  Report Type: 
  Country: None (occurrence: None)
  Receive Date: 20070721
  Receipt Date: 20070710
  Transmission Date: 20080115
  Serious: Yes (Other)
  Sender: FDA-Public Use
  Company Number: US-PFIZER INC-2007058659

PATIENT
  Sex: Male

DRUGS (2)
  1. LIPITOR [Suspect]
  2. GRAPEFRUIT JUICE [Interacting]

REACTIONS (4)
  - DRUG INTERACTION [None]
  - FOOD INTERACTION [None]
  - INTERVERTEBRAL DISC PROTRUSION [None]
  - PAIN [None]
